FAERS Safety Report 17925904 (Version 2)
Quarter: 2020Q3

REPORT INFORMATION
  Report Type: Spontaneous
  Country: DK (occurrence: DK)
  Receive Date: 20200622
  Receipt Date: 20200706
  Transmission Date: 20201103
  Serious: Yes (Hospitalization, Other)
  Sender: FDA-Public Use
  Company Number: DK-MYLANLABS-2020M1056835

PATIENT
  Age: 88 Year
  Sex: Female

DRUGS (6)
  1. RIVAROXABAN [Interacting]
     Active Substance: RIVAROXABAN
     Indication: ATRIAL FIBRILLATION
     Dosage: 20 MILLIGRAM, QD
  2. PARACETAMOL [Concomitant]
     Active Substance: ACETAMINOPHEN
     Dosage: OCCASIONALLY
  3. OESTRADIOL                         /00045401/ [Concomitant]
     Dosage: UNK
     Route: 067
  4. AMIODARONE [Suspect]
     Active Substance: AMIODARONE
     Indication: PRODUCT USED FOR UNKNOWN INDICATION
     Dosage: UNK
  5. PANTOPRAZOLE [Concomitant]
     Active Substance: PANTOPRAZOLE
     Dosage: UNK
  6. METOPROLOL. [Concomitant]
     Active Substance: METOPROLOL
     Indication: HEART RATE IRREGULAR
     Dosage: UNK

REACTIONS (6)
  - International normalised ratio increased [Recovered/Resolved]
  - Renal impairment [Unknown]
  - Drug level increased [Recovered/Resolved]
  - Gastrointestinal disorder [Unknown]
  - Treatment failure [Unknown]
  - Drug interaction [Unknown]
